FAERS Safety Report 10079684 (Version 1)
Quarter: 2014Q2

REPORT INFORMATION
  Report Type: Spontaneous
  Country: US (occurrence: None)
  Receive Date: 20140414
  Receipt Date: 20140414
  Transmission Date: 20141212
  Serious: Yes (Other)
  Sender: FDA-Public Use
  Company Number: None

PATIENT
  Age: 34 Year
  Sex: Male
  Weight: 121.56 kg

DRUGS (1)
  1. DOXYCYCLINE HYCLATE [Suspect]
     Route: 048
     Dates: start: 20140109, end: 20140110

REACTIONS (3)
  - Dizziness [None]
  - Gait disturbance [None]
  - Nausea [None]
